FAERS Safety Report 6357004-1 (Version None)
Quarter: 2009Q3

REPORT INFORMATION
  Report Type: 
  Country: None (occurrence: None)
  Receive Date: 20090915
  Receipt Date: 20080912
  Transmission Date: 20100115
  Serious: No
  Sender: FDA-Public Use
  Company Number: US-ABBOTT-08P-163-0476224-00

PATIENT
  Sex: Male
  Weight: 74.002 kg

DRUGS (1)
  1. DEPAKOTE [Suspect]
     Indication: CONVULSION
     Dosage: 5 CAPS BID
     Route: 048

REACTIONS (1)
  - DENTAL CARIES [None]
